FAERS Safety Report 7459681-0 (Version None)
Quarter: 2011Q2

REPORT INFORMATION
  Report Type: 
  Country: None (occurrence: None)
  Receive Date: 20110505
  Receipt Date: 20110422
  Transmission Date: 20111010
  Serious: Yes (Hospitalization, Other)
  Sender: FDA-Public Use
  Company Number: US-ELI_LILLY_AND_COMPANY-US201104006987

PATIENT
  Sex: Female

DRUGS (13)
  1. RANITIDINE [Concomitant]
     Dosage: UNK, UNKNOWN
     Route: 065
  2. CALCITONIN [Concomitant]
     Dosage: UNK, UNKNOWN
     Route: 045
  3. METOPROLOL SUCCINATE [Concomitant]
     Dosage: UNK, UNKNOWN
     Route: 065
  4. JANUVIA [Concomitant]
     Dosage: UNK, UNKNOWN
     Route: 065
  5. MILK OF MAGNESIA TAB [Concomitant]
     Dosage: UNK, UNKNOWN
     Route: 065
  6. FISH OIL [Concomitant]
     Dosage: UNK, UNKNOWN
     Route: 065
  7. VIT E                              /00110501/ [Concomitant]
     Dosage: UNK, UNKNOWN
     Route: 065
  8. FEXOFENADINE [Concomitant]
     Dosage: UNK, UNKNOWN
     Route: 065
  9. CALCIUM +VIT D [Concomitant]
     Dosage: UNK, UNKNOWN
     Route: 065
  10. FORTEO [Suspect]
     Dosage: 20 UG, QD
     Route: 065
  11. VYTORIN [Concomitant]
     Dosage: UNK, UNKNOWN
     Route: 065
  12. ACETAMINOPHEN [Concomitant]
     Dosage: UNK, UNKNOWN
     Route: 065
  13. CENTRUM [Concomitant]
     Dosage: UNK, UNKNOWN
     Route: 065

REACTIONS (8)
  - HYPERSENSITIVITY [None]
  - DAYDREAMING [None]
  - DYSPHAGIA [None]
  - EATING DISORDER [None]
  - ISCHAEMIC STROKE [None]
  - HEMIPARESIS [None]
  - RHINORRHOEA [None]
  - SPEECH DISORDER [None]
